FAERS Safety Report 18850456 (Version 1)
Quarter: 2021Q1

REPORT INFORMATION
  Report Type: Spontaneous
  Country: FR (occurrence: FR)
  Receive Date: 20210205
  Receipt Date: 20210205
  Transmission Date: 20210420
  Serious: Yes (Hospitalization)
  Sender: FDA-Public Use
  Company Number: FR-TEVA-2021-FR-1876116

PATIENT
  Age: 16 Year
  Sex: Male
  Weight: 48 kg

DRUGS (5)
  1. AMOXICILLINE [Suspect]
     Active Substance: AMOXICILLIN
     Indication: PNEUMONIA
     Dosage: 1500 MG
     Route: 048
     Dates: start: 20210108, end: 20210110
  2. CLARITHROMYCINE [Suspect]
     Active Substance: CLARITHROMYCIN
     Indication: PNEUMONIA
     Dosage: 500 MG
     Route: 048
     Dates: start: 20210107, end: 20210110
  3. ASPEGIC [Concomitant]
  4. SPECIAFOLDINE 5 MG, COMPRIME [Concomitant]
     Active Substance: FOLIC ACID
  5. ORACILLINE 1 000 000 UI, COMPRIME SECABLE [Concomitant]
     Active Substance: PENICILLIN V

REACTIONS (2)
  - Hallucinations, mixed [Recovering/Resolving]
  - Brief psychotic disorder with marked stressors [Recovering/Resolving]

NARRATIVE: CASE EVENT DATE: 20210109
